FAERS Safety Report 11151062 (Version 1)
Quarter: 2015Q2

REPORT INFORMATION
  Report Type: Spontaneous
  Country: US (occurrence: None)
  Receive Date: 20150529
  Receipt Date: 20150529
  Transmission Date: 20150821
  Serious: Yes (Life-Threatening, Disabling, Other)
  Sender: FDA-Public Use
  Company Number: None

PATIENT
  Age: 44 Year
  Sex: Female
  Weight: 132 kg

DRUGS (15)
  1. LYRICA [Suspect]
     Active Substance: PREGABALIN
     Indication: DIABETIC NEUROPATHY
     Dosage: 2 PILLS ?
     Route: 048
     Dates: start: 20150510, end: 20150524
  2. ALEVE [Concomitant]
     Active Substance: NAPROXEN SODIUM
  3. VYYBRID [Concomitant]
  4. LAMICTAL [Concomitant]
     Active Substance: LAMOTRIGINE
  5. CRESTOR [Concomitant]
     Active Substance: ROSUVASTATIN CALCIUM
  6. LYRICA [Suspect]
     Active Substance: PREGABALIN
     Indication: FIBROMYALGIA
     Dosage: 2 PILLS ?
     Route: 048
     Dates: start: 20150510, end: 20150524
  7. LOVAZA [Concomitant]
     Active Substance: OMEGA-3-ACID ETHYL ESTERS
  8. LORAZAPAM [Concomitant]
     Active Substance: LORAZEPAM
  9. METFORMIN [Concomitant]
     Active Substance: METFORMIN HYDROCHLORIDE
  10. TYLENOL EXTRA STRENGTH [Concomitant]
     Active Substance: ACETAMINOPHEN
  11. ZITIA [Concomitant]
  12. NOVALOG INSULIN [Concomitant]
  13. LEVIMIR INSULIN [Concomitant]
  14. SYNTHROID [Concomitant]
     Active Substance: LEVOTHYROXINE SODIUM
  15. VITAMIN B COMPLEX [Concomitant]
     Active Substance: CYANOCOBALAMIN\DEXPANTHENOL\NIACINAMIDE\PYRIDOXINE HYDROCHLORIDE\RIBOFLAVIN 5^-PHOSPHATE SODIUM\THIAMINE HYDROCHLORIDE\VITAMIN B COMPLEX

REACTIONS (15)
  - Constipation [None]
  - Depressed mood [None]
  - Self esteem decreased [None]
  - Vision blurred [None]
  - Fatigue [None]
  - Anger [None]
  - Rash [None]
  - Drug dependence [None]
  - Weight increased [None]
  - Feeling abnormal [None]
  - Mental disorder [None]
  - Suicidal ideation [None]
  - Aggression [None]
  - Memory impairment [None]
  - Withdrawal syndrome [None]

NARRATIVE: CASE EVENT DATE: 20150510
